FAERS Safety Report 6528989-5 (Version None)
Quarter: 2009Q4

REPORT INFORMATION
  Report Type: 
  Country: None (occurrence: None)
  Receive Date: 20091222
  Receipt Date: 20091214
  Transmission Date: 20100525
  Serious: Yes (Hospitalization)
  Sender: FDA-Public Use
  Company Number: 2009AL007764

PATIENT
  Age: 83 Year
  Sex: Female

DRUGS (8)
  1. GABAPENTIN [Suspect]
     Indication: NEURALGIA
  2. CARBIDOPA AND LEVODOPA [Concomitant]
  3. AMANTADINE HCL [Concomitant]
  4. KETIAPIN [Concomitant]
  5. SERTRALIN [Concomitant]
  6. WARFARIN [Concomitant]
  7. PROPAFENONE HCL [Concomitant]
  8. INSULIN [Concomitant]

REACTIONS (3)
  - BALLISMUS [None]
  - DYSSTASIA [None]
  - RIB FRACTURE [None]
